FAERS Safety Report 9388203 (Version 1)
Quarter: 2013Q3

REPORT INFORMATION
  Report Type: Spontaneous
  Country: BR (occurrence: BR)
  Receive Date: 20130708
  Receipt Date: 20130708
  Transmission Date: 20140515
  Serious: Yes (Death, Hospitalization, Other)
  Sender: FDA-Public Use
  Company Number: BR-BAYER-2013-078768

PATIENT
  Age: 49 Year
  Sex: Female
  Weight: 113 kg

DRUGS (10)
  1. CIPROFLOXACIN [Suspect]
     Indication: WOUND INFECTION STAPHYLOCOCCAL
     Dosage: 1 G, DAILY
     Dates: start: 20091027
  2. TEICOPLANIN [Concomitant]
     Indication: WOUND INFECTION PSEUDOMONAS
     Dosage: 800 MG, DAILY
     Dates: start: 20091104
  3. ROSUVASTATIN [Concomitant]
     Indication: HYPERCHOLESTEROLAEMIA
     Dosage: 10 MG, DAILY
  4. METFORMIN [Concomitant]
     Indication: DIABETES MELLITUS
     Dosage: 500 MG, DAILY
  5. METOPROLOL [Concomitant]
     Indication: HYPERTENSION
     Dosage: 100 MG, DAILY
  6. ACETYLSALICYLIC ACID [Concomitant]
     Indication: ANTICOAGULANT THERAPY
     Dosage: 100 MG, DAILY
  7. LOSARTAN [Concomitant]
     Indication: HYPERTENSION
     Dosage: 50 MG, DAILY
  8. PROPATYLNITRATE [Concomitant]
     Dosage: 20 MG, DAILY
  9. HYDROCHLOROTHIAZIDE [Concomitant]
     Indication: HYPERTENSION
     Dosage: 12.5 MG, DAILY
  10. CHLORPROPAMIDE [Concomitant]
     Indication: DIABETES MELLITUS
     Dosage: 250 MG, DAILY

REACTIONS (5)
  - Electrocardiogram QT prolonged [None]
  - Syncope [None]
  - Drug ineffective [None]
  - Pulmonary embolism [Fatal]
  - Cardio-respiratory arrest [Fatal]
